FAERS Safety Report 9503027 (Version 5)
Quarter: 2013Q4

REPORT INFORMATION
  Report Type: Spontaneous
  Country: CA (occurrence: CA)
  Receive Date: 20130906
  Receipt Date: 20131223
  Transmission Date: 20140711
  Serious: Yes (Hospitalization, Other)
  Sender: FDA-Public Use
  Company Number: CA-ASTELLAS-2013US008948

PATIENT
  Age: 66 Year
  Sex: Female
  Weight: 55 kg

DRUGS (6)
  1. MYRBETRIQ [Suspect]
     Indication: HYPERTONIC BLADDER
     Dosage: UNK
     Route: 048
     Dates: start: 20130612, end: 20130709
  2. ACLASTA [Concomitant]
     Indication: PRODUCT USED FOR UNKNOWN INDICATION
     Dosage: UNK
     Route: 065
  3. ELAVIL                             /00002202/ [Concomitant]
     Indication: PRODUCT USED FOR UNKNOWN INDICATION
     Dosage: 10 DF, UID/QD
     Route: 065
  4. NASONEX [Concomitant]
     Indication: PRODUCT USED FOR UNKNOWN INDICATION
     Dosage: UNK
     Route: 065
  5. CALCIUM 500+D [Concomitant]
     Indication: PRODUCT USED FOR UNKNOWN INDICATION
     Dosage: 400 DF, BID
     Route: 065
  6. MOTILIUM                           /00498201/ [Concomitant]
     Indication: PRODUCT USED FOR UNKNOWN INDICATION
     Dosage: UNK PG, PRN
     Route: 065
     Dates: start: 2009

REACTIONS (7)
  - Vasospasm [Unknown]
  - Myocarditis [Unknown]
  - Syncope [Unknown]
  - Arterial occlusive disease [Unknown]
  - Amnesia [Unknown]
  - Oedema [Unknown]
  - Cystitis [Unknown]
